FAERS Safety Report 23169587 (Version 1)
Quarter: 2023Q4

REPORT INFORMATION
  Report Type: Spontaneous
  Country: US (occurrence: US)
  Receive Date: 20231110
  Receipt Date: 20231110
  Transmission Date: 20240110
  Serious: Yes (Other)
  Sender: FDA-Public Use
  Company Number: US-CIPLA LTD.-2023US06945

PATIENT

DRUGS (1)
  1. ARGATROBAN [Suspect]
     Active Substance: ARGATROBAN
     Indication: Thrombocytopenia
     Dosage: UNK

REACTIONS (1)
  - Drug ineffective [Unknown]
